FAERS Safety Report 4916015-0 (Version None)
Quarter: 2006Q1

REPORT INFORMATION
  Report Type: 
  Country: None (occurrence: None)
  Receive Date: 20060217
  Receipt Date: 20060207
  Transmission Date: 20060701
  Serious: Yes (Hospitalization)
  Sender: FDA-Public Use
  Company Number: DE-ABBOTT-06P-062-0324429-00

PATIENT
  Sex: Male

DRUGS (6)
  1. KALETRA [Suspect]
     Indication: HIV INFECTION
     Dosage: 800MG/200MG TWICE A DAY
     Route: 048
     Dates: start: 20060116
  2. LAMIVUDINE AND STAVUDINE [Concomitant]
     Indication: HIV INFECTION
     Dosage: 600/300MG
     Route: 048
     Dates: start: 20060116
  3. COTRIM DS [Concomitant]
     Indication: PROPHYLAXIS
     Route: 048
     Dates: start: 20060106, end: 20060126
  4. PENTAMIDINE ISETHIONATE [Concomitant]
     Indication: PROPHYLAXIS
     Route: 055
     Dates: start: 20060131
  5. METOCLOPRAMIDE [Concomitant]
     Indication: NAUSEA
     Route: 048
     Dates: start: 20060116
  6. FENOTEROL HYDROBROMIDE [Concomitant]
     Indication: ASTHMA
     Route: 055
     Dates: start: 20060131

REACTIONS (2)
  - PNEUMOCYSTIS JIROVECI PNEUMONIA [None]
  - UNEVALUABLE EVENT [None]
